FAERS Safety Report 4971499-7 (Version None)
Quarter: 2006Q2

REPORT INFORMATION
  Report Type: 
  Country: None (occurrence: None)
  Receive Date: 20060413
  Receipt Date: 20060404
  Transmission Date: 20061013
  Serious: Yes (Other)
  Sender: FDA-Public Use
  Company Number: PHBS2006ZA05124

PATIENT
  Sex: Female

DRUGS (4)
  1. ZOMETA [Suspect]
     Indication: BREAST CANCER METASTATIC
     Dosage: 4 MG, UNK
  2. ARIMIDEX [Concomitant]
  3. DURAGESIC-100 [Concomitant]
  4. LENTOGESIC [Concomitant]

REACTIONS (1)
  - OSTEONECROSIS [None]
